FAERS Safety Report 8318238-X (Version None)
Quarter: 2012Q2

REPORT INFORMATION
  Report Type: 
  Country: None (occurrence: None)
  Receive Date: 20120427
  Receipt Date: 20120425
  Transmission Date: 20120825
  Serious: Yes (Death, Other)
  Sender: FDA-Public Use
  Company Number: US-JNJFOC-20120409302

PATIENT

DRUGS (12)
  1. TOSITUMOMAB-IODINE 131 [Suspect]
     Indication: MANTLE CELL LYMPHOMA
     Route: 065
  2. DOXORUBICIN HCL [Suspect]
     Indication: MANTLE CELL LYMPHOMA
     Route: 042
  3. CYTARABINE [Suspect]
     Indication: DIFFUSE LARGE B-CELL LYMPHOMA
     Route: 065
  4. ETOPOSIDE [Suspect]
     Indication: MANTLE CELL LYMPHOMA
     Route: 065
  5. TOSITUMOMAB-IODINE 131 [Suspect]
     Indication: DIFFUSE LARGE B-CELL LYMPHOMA
     Route: 065
  6. ETOPOSIDE [Suspect]
     Indication: DIFFUSE LARGE B-CELL LYMPHOMA
     Route: 065
  7. RITUXIMAB [Suspect]
     Indication: MANTLE CELL LYMPHOMA
     Route: 065
  8. RITUXIMAB [Suspect]
     Indication: DIFFUSE LARGE B-CELL LYMPHOMA
     Route: 065
  9. CYTARABINE [Suspect]
     Indication: MANTLE CELL LYMPHOMA
     Route: 065
  10. DOXORUBICIN HCL [Suspect]
     Indication: DIFFUSE LARGE B-CELL LYMPHOMA
     Route: 042
  11. CYCLOPHOSPHAMIDE [Suspect]
     Indication: MANTLE CELL LYMPHOMA
     Route: 065
  12. CYCLOPHOSPHAMIDE [Suspect]
     Indication: DIFFUSE LARGE B-CELL LYMPHOMA
     Route: 065

REACTIONS (9)
  - DISEASE PROGRESSION [None]
  - PANCYTOPENIA [None]
  - MANTLE CELL LYMPHOMA [None]
  - DIFFUSE LARGE B-CELL LYMPHOMA [None]
  - MUCOSAL INFLAMMATION [None]
  - FEBRILE NEUTROPENIA [None]
  - NEUTROPENIA [None]
  - THROMBOCYTOPENIA [None]
  - INFECTION [None]
